FAERS Safety Report 21732345 (Version 2)
Quarter: 2023Q1

REPORT INFORMATION
  Report Type: Spontaneous
  Country: US (occurrence: US)
  Receive Date: 20221215
  Receipt Date: 20230105
  Transmission Date: 20230417
  Serious: No
  Sender: FDA-Public Use
  Company Number: US-LUPIN PHARMACEUTICALS INC.-2022-14299

PATIENT

DRUGS (1)
  1. LISINOPRIL [Suspect]
     Active Substance: LISINOPRIL
     Indication: Hypertension
     Dosage: 10 MILLIGRAM, BID
     Route: 065

REACTIONS (5)
  - Recalled product administered [Unknown]
  - Headache [Unknown]
  - Chest pain [Unknown]
  - Abdominal pain upper [Unknown]
  - Product contamination physical [Unknown]
